FAERS Safety Report 13870871 (Version 3)
Quarter: 2020Q3

REPORT INFORMATION
  Report Type: Report from Study
  Country: CO (occurrence: CO)
  Receive Date: 20170816
  Receipt Date: 20200707
  Transmission Date: 20201102
  Serious: Yes (Hospitalization)
  Sender: FDA-Public Use
  Company Number: PHHY2017CO118273

PATIENT
  Age: 18 Year
  Sex: Male
  Weight: 48 kg

DRUGS (1)
  1. GILENYA [Suspect]
     Active Substance: FINGOLIMOD HYDROCHLORIDE
     Indication: MULTIPLE SCLEROSIS
     Dosage: 0.5 MG, QD
     Route: 048
     Dates: start: 20161012

REACTIONS (12)
  - Pain [Not Recovered/Not Resolved]
  - Tremor [Recovering/Resolving]
  - Malaise [Unknown]
  - Hemiparesis [Unknown]
  - Vertigo [Not Recovered/Not Resolved]
  - Asthenia [Not Recovered/Not Resolved]
  - Dizziness [Unknown]
  - Central nervous system lesion [Unknown]
  - Hypoaesthesia [Unknown]
  - Balance disorder [Recovering/Resolving]
  - Urinary incontinence [Not Recovered/Not Resolved]
  - Fatigue [Not Recovered/Not Resolved]

NARRATIVE: CASE EVENT DATE: 20170520
